FAERS Safety Report 15896824 (Version 1)
Quarter: 2019Q1

REPORT INFORMATION
  Report Type: Report from Study
  Country: US (occurrence: US)
  Receive Date: 20190131
  Receipt Date: 20190131
  Transmission Date: 20190417
  Serious: Yes (Life-Threatening, Hospitalization, Other)
  Sender: FDA-Public Use
  Company Number: US-GILEAD-2019-0386806

PATIENT
  Age: 70 Year
  Sex: Male

DRUGS (10)
  1. BLINDED PLACEBO [Suspect]
     Active Substance: INVESTIGATIONAL PRODUCT
     Indication: BONE MARROW TRANSPLANT
     Dosage: 100 MG
     Route: 048
     Dates: start: 20180906, end: 20181011
  2. ENTECAVIR. [Concomitant]
     Active Substance: ENTECAVIR
  3. NOXAFIL [Concomitant]
     Active Substance: POSACONAZOLE
  4. BLINDED IDELALISIB [Suspect]
     Active Substance: IDELALISIB
     Indication: BONE MARROW TRANSPLANT
     Dosage: 100 MG
     Route: 048
     Dates: start: 20180906, end: 20181011
  5. VALTREX [Concomitant]
     Active Substance: VALACYCLOVIR HYDROCHLORIDE
  6. ALBUTEROL HFA [Concomitant]
     Active Substance: ALBUTEROL SULFATE
  7. BACTRIM [Concomitant]
     Active Substance: SULFAMETHOXAZOLE\TRIMETHOPRIM
  8. CEFDINIR. [Concomitant]
     Active Substance: CEFDINIR
  9. GABAPENTIN. [Concomitant]
     Active Substance: GABAPENTIN
  10. PIOGLITAZONE. [Concomitant]
     Active Substance: PIOGLITAZONE

REACTIONS (1)
  - Cytomegalovirus viraemia [Not Recovered/Not Resolved]

NARRATIVE: CASE EVENT DATE: 20181012
